FAERS Safety Report 6937399-8 (Version None)
Quarter: 2010Q3

REPORT INFORMATION
  Report Type: 
  Country: None (occurrence: None)
  Receive Date: 20100823
  Receipt Date: 20100816
  Transmission Date: 20110219
  Serious: Yes (Other)
  Sender: FDA-Public Use
  Company Number: NL-AMGEN-QUU426192

PATIENT
  Sex: Female

DRUGS (17)
  1. ENBREL [Suspect]
     Indication: PRODUCT USED FOR UNKNOWN INDICATION
     Dates: start: 20070914
  2. PIROXICAM [Concomitant]
  3. METHOTREXATE [Concomitant]
  4. ISONIAZID [Concomitant]
  5. EVISTA [Concomitant]
  6. LISINOPRIL [Concomitant]
  7. TRIAMTERENE AND HYDROCHLOROTHIAZIDE [Concomitant]
  8. FUROSEMIDE [Concomitant]
  9. FOLIC ACID [Concomitant]
  10. CARBASALATE CALCIUM [Concomitant]
  11. PYRIDOXINE HYDROCHLORIDE [Concomitant]
  12. METAMUCIL-2 [Concomitant]
     Dosage: 1-2 TIMES PER DAY 1 POWDER
  13. NEXIUM [Concomitant]
  14. PREDNISOLON [Concomitant]
  15. FLUCLOXACILLIN [Concomitant]
  16. CODEINE PHOSPHATE [Concomitant]
     Dosage: 10 MG
  17. TRAMADOL HYDROCHLORIDE [Concomitant]

REACTIONS (1)
  - NEOPLASM MALIGNANT [None]
